FAERS Safety Report 8984872 (Version 1)
Quarter: 2012Q4

REPORT INFORMATION
  Report Type: 
  Country: US (occurrence: US)
  Receive Date: 20121226
  Receipt Date: 20121226
  Transmission Date: 20130627
  Serious: No
  Sender: FDA-Public Use
  Company Number: US-PFIZER INC-2012324744

PATIENT
  Sex: Female

DRUGS (2)
  1. LYRICA [Suspect]
     Dosage: 75 mg, 2x/day
     Dates: start: 201210
  2. LYRICA [Suspect]
     Dosage: 50 mg, 2x/day
     Dates: start: 201211

REACTIONS (2)
  - Dizziness [Unknown]
  - Balance disorder [Unknown]
